FAERS Safety Report 8477458-4 (Version None)
Quarter: 2012Q2

REPORT INFORMATION
  Report Type: 
  Country: None (occurrence: None)
  Receive Date: 20120629
  Receipt Date: 20120625
  Transmission Date: 20120825
  Serious: Yes (Other)
  Sender: FDA-Public Use
  Company Number: PHEH2011US00500

PATIENT
  Sex: Female

DRUGS (2)
  1. AREDIA [Suspect]
     Route: 042
  2. ZOMETA [Suspect]
     Route: 042

REACTIONS (16)
  - INFECTION [None]
  - SWELLING [None]
  - CARDIOMEGALY [None]
  - ARTHRALGIA [None]
  - OSTEONECROSIS OF JAW [None]
  - EMOTIONAL DISTRESS [None]
  - DEFORMITY [None]
  - BRONCHITIS [None]
  - PAIN [None]
  - RIB FRACTURE [None]
  - MULTIPLE MYELOMA [None]
  - BACK PAIN [None]
  - INJURY [None]
  - INTERVERTEBRAL DISC PROTRUSION [None]
  - BREAST CYST [None]
  - SPINAL COMPRESSION FRACTURE [None]
